FAERS Safety Report 6915763-0 (Version None)
Quarter: 2010Q3

REPORT INFORMATION
  Report Type: 
  Country: None (occurrence: None)
  Receive Date: 20100810
  Receipt Date: 20100201
  Transmission Date: 20110219
  Serious: No
  Sender: FDA-Public Use
  Company Number: A0726175A

PATIENT
  Age: 51 Year
  Sex: Female

DRUGS (8)
  1. PAXIL [Suspect]
     Indication: ANXIETY DISORDER
     Dosage: 10MG PER DAY
     Route: 048
     Dates: start: 20080429
  2. PRILOSEC [Concomitant]
  3. CLARINEX [Concomitant]
  4. SYNTHROID [Concomitant]
  5. BENADRYL [Concomitant]
  6. XANAX [Concomitant]
  7. NASACORT AQ [Concomitant]
  8. CALCIUM [Concomitant]

REACTIONS (12)
  - ALOPECIA [None]
  - BINGE EATING [None]
  - DYSPEPSIA [None]
  - EATING DISORDER [None]
  - FLAT AFFECT [None]
  - HEADACHE [None]
  - LOSS OF LIBIDO [None]
  - MUSCLE SPASMS [None]
  - NERVOUSNESS [None]
  - PRURITUS [None]
  - TINNITUS [None]
  - YAWNING [None]
